FAERS Safety Report 5275781-8 (Version None)
Quarter: 2007Q1

REPORT INFORMATION
  Report Type: 
  Country: None (occurrence: None)
  Receive Date: 20070326
  Receipt Date: 20070322
  Transmission Date: 20070707
  Serious: Yes (Hospitalization)
  Sender: FDA-Public Use
  Company Number: FR-GLAXOSMITHKLINE-B0462248A

PATIENT
  Age: 52 Year
  Sex: Female
  Weight: 43 kg

DRUGS (11)
  1. EPIVIR [Suspect]
     Dosage: 300MG PER DAY
     Route: 048
  2. NORVIR [Suspect]
     Dosage: 200MG PER DAY
     Route: 048
  3. TELZIR [Concomitant]
     Route: 065
  4. ZIAGEN [Concomitant]
     Route: 065
  5. LASIX [Concomitant]
     Route: 065
  6. OMEPRAZOLE [Concomitant]
     Route: 065
  7. CALCIDIA [Concomitant]
     Dosage: 3UNIT PER DAY
     Route: 065
  8. PRIMPERAN INJ [Concomitant]
     Dosage: 3UNIT PER DAY
     Route: 065
  9. LANTUS [Concomitant]
     Route: 065
  10. NOVORAPID [Concomitant]
     Route: 065
  11. LEXOMIL [Concomitant]
     Route: 065

REACTIONS (7)
  - BLOOD LACTIC ACID INCREASED [None]
  - BLOOD UREA INCREASED [None]
  - GRAND MAL CONVULSION [None]
  - HYPERGLYCAEMIA [None]
  - HYPONATRAEMIA [None]
  - MYOCLONUS [None]
  - SOMNOLENCE [None]
